FAERS Safety Report 6064580-5 (Version None)
Quarter: 2009Q1

REPORT INFORMATION
  Report Type: 
  Country: None (occurrence: None)
  Receive Date: 20090204
  Receipt Date: 20090128
  Transmission Date: 20090719
  Serious: Yes (Other)
  Sender: FDA-Public Use
  Company Number: B0555151A

PATIENT
  Age: 13 Year
  Sex: Female

DRUGS (1)
  1. AUGMENTIN '125' [Suspect]
     Indication: DRUG USE FOR UNKNOWN INDICATION
     Route: 065

REACTIONS (6)
  - AUTISM [None]
  - DEVELOPMENTAL DELAY [None]
  - EPILEPSY [None]
  - HUMERUS FRACTURE [None]
  - NEUROLOGICAL DECOMPENSATION [None]
  - UPPER RESPIRATORY TRACT INFECTION [None]
